FAERS Safety Report 10380516 (Version 2)
Quarter: 2015Q2

REPORT INFORMATION
  Report Type: Spontaneous
  Country: JP (occurrence: JP)
  Receive Date: 20140813
  Receipt Date: 20150415
  Transmission Date: 20150821
  Serious: Yes (Hospitalization, Other)
  Sender: FDA-Public Use
  Company Number: PHHY2011JP121924

PATIENT
  Age: 85 Year
  Sex: Female

DRUGS (2)
  1. GLIVEC [Suspect]
     Active Substance: IMATINIB MESYLATE
     Dosage: 400 MG, QD (DAILY)
     Route: 065
     Dates: start: 20090101
  2. GLIVEC [Suspect]
     Active Substance: IMATINIB MESYLATE
     Indication: CHRONIC MYELOID LEUKAEMIA
     Dosage: UNK
     Route: 065
     Dates: start: 200811

REACTIONS (5)
  - Vomiting [Unknown]
  - Pleural effusion [Unknown]
  - Lymphoma [Unknown]
  - Oedema [Unknown]
  - Second primary malignancy [Unknown]

NARRATIVE: CASE EVENT DATE: 200909
